FAERS Safety Report 10398568 (Version 1)
Quarter: 2014Q3

REPORT INFORMATION
  Report Type: Report from Study
  Country: BR (occurrence: BR)
  Receive Date: 20140821
  Receipt Date: 20140821
  Transmission Date: 20150326
  Serious: Yes (Other)
  Sender: FDA-Public Use
  Company Number: PHHY2014BR103641

PATIENT

DRUGS (9)
  1. DIOVAN HCT [Suspect]
     Active Substance: HYDROCHLOROTHIAZIDE\VALSARTAN
     Indication: HYPERTENSION
     Dosage: 1 DF(320/12.5MG), DAILY
     Route: 048
  2. GLIMEPIRIDE. [Concomitant]
     Active Substance: GLIMEPIRIDE
     Indication: DIABETES MELLITUS
     Dosage: UNK UKN(4MG), UNK
  3. NATRILIX [Concomitant]
     Active Substance: INDAPAMIDE
     Indication: SWELLING
  4. SOMALGIN [Concomitant]
     Active Substance: ASPIRIN\DIHYDROXYALUMINUM AMINOACETATE ANHYDROUS\MAGNESIUM CARBONATE
     Indication: ANTICOAGULANT THERAPY
     Dosage: UNK UKN(100MG), UNK
  5. SIMVASTATIN. [Concomitant]
     Active Substance: SIMVASTATIN
     Indication: BLOOD CHOLESTEROL ABNORMAL
     Dosage: UNK UKN, UNK(USED WHEN HER CHOLESTEROL WAS BAD)
  6. DIGOXIN. [Concomitant]
     Active Substance: DIGOXIN
     Indication: CARDIAC DISORDER
     Dosage: UNK UKN(0.25MG), UNK
  7. SPIRONOLACTONE. [Concomitant]
     Active Substance: SPIRONOLACTONE
     Dosage: UNK UKN(100MG), BEFORE LUNCH
  8. MAREVAN [Concomitant]
     Active Substance: WARFARIN SODIUM
     Indication: COAGULOPATHY
     Dosage: UNK UKN(5MG), UNK
  9. NATRILIX [Concomitant]
     Active Substance: INDAPAMIDE
     Indication: POLYURIA
     Dosage: UNK UKN, UNK(WHEN NEEDED)

REACTIONS (5)
  - Arrhythmia [Unknown]
  - Pulmonary fibrosis [Unknown]
  - Cardiomegaly [Unknown]
  - Blood pressure increased [Unknown]
  - Thyroid disorder [Unknown]
